FAERS Safety Report 15094891 (Version 1)
Quarter: 2018Q3

REPORT INFORMATION
  Report Type: Report from Study
  Country: CL (occurrence: CL)
  Receive Date: 20180701
  Receipt Date: 20180701
  Transmission Date: 20181010
  Serious: Yes (Hospitalization, Disabling, Other)
  Sender: FDA-Public Use
  Company Number: CL-UCBSA-2018028490

PATIENT
  Age: 79 Year
  Sex: Male

DRUGS (7)
  1. LEVODOPA/BENSERAZIDE [Concomitant]
     Active Substance: BENSERAZIDE\LEVODOPA
     Indication: PARKINSON^S DISEASE
  2. FLUTAMIDE. [Concomitant]
     Active Substance: FLUTAMIDE
     Indication: PROSTATE CANCER
  3. ROTIGOTINE [Suspect]
     Active Substance: ROTIGOTINE
     Indication: PARKINSON^S DISEASE
     Dosage: 4 MG, ONCE DAILY (QD)
     Route: 062
     Dates: start: 20180417, end: 201805
  4. DECAPEPTYL [Concomitant]
     Active Substance: TRIPTORELIN
     Indication: PROSTATE CANCER
  5. TRAZODONE [Concomitant]
     Active Substance: TRAZODONE HYDROCHLORIDE
     Indication: PARKINSON^S DISEASE
  6. PHENOLPHTHALEIN [Concomitant]
     Active Substance: PHENOLPHTHALEIN
     Indication: CONSTIPATION
  7. CIRUELAX [Concomitant]
     Indication: CONSTIPATION

REACTIONS (6)
  - Intestinal obstruction [Recovered/Resolved]
  - Prostate cancer metastatic [Recovering/Resolving]
  - Muscle rigidity [Recovering/Resolving]
  - Metastases to spine [Recovering/Resolving]
  - Constipation [Recovered/Resolved]
  - Weight decreased [Not Recovered/Not Resolved]

NARRATIVE: CASE EVENT DATE: 201804
